FAERS Safety Report 9320889 (Version 1)
Quarter: 2013Q2

REPORT INFORMATION
  Report Type: Spontaneous
  Country: US (occurrence: None)
  Receive Date: 20130529
  Receipt Date: 20130529
  Transmission Date: 20140414
  Serious: Yes (Hospitalization)
  Sender: FDA-Public Use
  Company Number: None

PATIENT
  Age: 80 Year
  Sex: Male

DRUGS (2)
  1. INSULIN [Suspect]
     Indication: TYPE 1 DIABETES MELLITUS
     Dosage: 37 UNITS
     Route: 058
     Dates: start: 20070125, end: 20130525
  2. INSULIN [Suspect]
     Dosage: 12 UNITS
     Route: 058
     Dates: start: 20070925, end: 20130525

REACTIONS (2)
  - Hypoglycaemia [None]
  - Mental status changes [None]
